FAERS Safety Report 4636286-8 (Version None)
Quarter: 2005Q2

REPORT INFORMATION
  Report Type: 
  Country: None (occurrence: None)
  Receive Date: 20050415
  Receipt Date: 20040621
  Transmission Date: 20051028
  Serious: No
  Sender: FDA-Public Use
  Company Number: US-BRISTOL-MYERS SQUIBB COMPANY-12621553

PATIENT
  Age: 57 Year
  Sex: Female

DRUGS (5)
  1. PARAPLATIN [Suspect]
     Indication: OVARIAN CANCER
     Dosage: AUC 2
     Route: 042
     Dates: start: 20040611, end: 20040611
  2. TAXOTERE [Concomitant]
     Dosage: INFUSION RATE: 1 HOUR
     Route: 042
     Dates: start: 20040611, end: 20040611
  3. DECADRON [Concomitant]
     Indication: PREMEDICATION
     Dosage: 8 MG BID X 3 DAYS PRIOR TO CHEMO; 10 MG IV PRIOR TO CHEMO
     Dates: end: 20040611
  4. ONDANSETRON [Concomitant]
     Indication: PREMEDICATION
     Route: 042
     Dates: start: 20040611, end: 20040611
  5. BENADRYL [Concomitant]
     Indication: PREMEDICATION
     Route: 042
     Dates: start: 20040611, end: 22040611

REACTIONS (4)
  - BLOOD PRESSURE INCREASED [None]
  - HEART RATE INCREASED [None]
  - PARAESTHESIA [None]
  - PRURITUS [None]
